FAERS Safety Report 25946476 (Version 1)
Quarter: 2025Q4

REPORT INFORMATION
  Report Type: Spontaneous
  Country: CN (occurrence: CN)
  Receive Date: 20251022
  Receipt Date: 20251022
  Transmission Date: 20260119
  Serious: Yes (Life-Threatening, Hospitalization)
  Sender: JIANGSU HENGRUI
  Company Number: CN-JIANGSU HENGRUI PHARMACEUTICALS CO., LTD.-H2025001207224

PATIENT
  Age: 43 Year

DRUGS (1)
  1. GADOTERATE MEGLUMINE [Suspect]
     Active Substance: GADOTERATE MEGLUMINE
     Indication: Magnetic resonance imaging
     Dosage: UNK UNK, SINGLE

REACTIONS (10)
  - Anaphylactic shock [Recovered/Resolved]
  - Brain oedema [Unknown]
  - Hypoxic-ischaemic encephalopathy [Recovering/Resolving]
  - Epilepsy [Recovered/Resolved]
  - Pneumonia [Recovering/Resolving]
  - Pulmonary bulla [Unknown]
  - Hepatic function abnormal [Not Recovered/Not Resolved]
  - Nephrocalcinosis [Unknown]
  - Peripheral vein thrombosis [Unknown]
  - Brain fog [Recovered/Resolved]
